FAERS Safety Report 17044846 (Version 4)
Quarter: 2020Q2

REPORT INFORMATION
  Report Type: Report from Study
  Country: PA (occurrence: PA)
  Receive Date: 20191118
  Receipt Date: 20200629
  Transmission Date: 20200713
  Serious: Yes (Other)
  Sender: FDA-Public Use
  Company Number: NVSC2019PA026144

PATIENT
  Age: 26 Year
  Sex: Male

DRUGS (1)
  1. GILENYA [Suspect]
     Active Substance: FINGOLIMOD HYDROCHLORIDE
     Indication: MULTIPLE SCLEROSIS
     Dosage: 0.5 MG, QD (VIA MOUTH)
     Route: 048
     Dates: start: 20190927

REACTIONS (20)
  - Choking sensation [Unknown]
  - Agitation [Unknown]
  - Blood pressure increased [Unknown]
  - Lymphocyte count decreased [Not Recovered/Not Resolved]
  - Influenza [Unknown]
  - Lymphopenia [Not Recovered/Not Resolved]
  - Chromaturia [Unknown]
  - Productive cough [Unknown]
  - Nasopharyngitis [Recovered/Resolved]
  - Arrhythmia [Unknown]
  - Anxiety [Unknown]
  - Nasopharyngitis [Unknown]
  - Nasal congestion [Unknown]
  - Hypertension [Not Recovered/Not Resolved]
  - Abdominal rigidity [Unknown]
  - Tachycardia [Not Recovered/Not Resolved]
  - Cardiac disorder [Unknown]
  - Stress [Unknown]
  - Decreased immune responsiveness [Not Recovered/Not Resolved]
  - Aphonia [Unknown]

NARRATIVE: CASE EVENT DATE: 20191231
